FAERS Safety Report 5480471-2 (Version None)
Quarter: 2007Q4

REPORT INFORMATION
  Report Type: 
  Country: None (occurrence: None)
  Receive Date: 20071009
  Receipt Date: 20071004
  Transmission Date: 20080405
  Serious: Yes (Hospitalization)
  Sender: FDA-Public Use
  Company Number: CR-BRISTOL-MYERS SQUIBB COMPANY-13714605

PATIENT
  Age: 40 Year
  Sex: Male

DRUGS (4)
  1. ATAZANAVIR SULFATE [Suspect]
     Dosage: INTERRUPTED ON 07-MAR-2007.
     Route: 048
     Dates: start: 20020704
  2. DIDANOSINE EC CAPS [Suspect]
     Dosage: INTERRUPTED ON 07-MAR-2007.
     Route: 048
     Dates: start: 20020704
  3. TENOFOVIR [Suspect]
     Dosage: INTERRUPTED ON 07-MAR-2007.
     Route: 048
     Dates: start: 20020704
  4. RITONAVIR [Suspect]
     Dosage: INTERRUPTED ON 07-MAR-2007.
     Route: 048
     Dates: start: 20020704

REACTIONS (2)
  - GASTROENTERITIS VIRAL [None]
  - RENAL FAILURE ACUTE [None]
